FAERS Safety Report 11379467 (Version 1)
Quarter: 2015Q3

REPORT INFORMATION
  Report Type: Spontaneous
  Country: TW (occurrence: TW)
  Receive Date: 20150814
  Receipt Date: 20150814
  Transmission Date: 20151125
  Serious: Yes (Other)
  Sender: FDA-Public Use
  Company Number: TW-AMGEN-TWNSP2015078692

PATIENT
  Age: 68 Year
  Sex: Female

DRUGS (1)
  1. ENBREL [Suspect]
     Active Substance: ETANERCEPT
     Indication: RHEUMATOID ARTHRITIS
     Dosage: 25 MG, EVERY 14 DAY
     Route: 058
     Dates: start: 20081225

REACTIONS (2)
  - Disease recurrence [Not Recovered/Not Resolved]
  - Breast fibroma [Not Recovered/Not Resolved]

NARRATIVE: CASE EVENT DATE: 2015
